FAERS Safety Report 11287094 (Version 1)
Quarter: 2015Q3

REPORT INFORMATION
  Report Type: Spontaneous
  Country: US (occurrence: None)
  Receive Date: 20150717
  Receipt Date: 20150717
  Transmission Date: 20151125
  Serious: No
  Sender: FDA-Public Use
  Company Number: None

PATIENT
  Age: 87 Year
  Sex: Male
  Weight: 67.2 kg

DRUGS (1)
  1. AMOXICILLIN/CLAVULANATE [Suspect]
     Active Substance: AMOXICILLIN\CLAVULANATE POTASSIUM
     Indication: UPPER RESPIRATORY TRACT INFECTION
     Dates: start: 20131020, end: 20131123

REACTIONS (16)
  - Chills [None]
  - Hepatic cirrhosis [None]
  - Pancytopenia [None]
  - Dizziness [None]
  - Retching [None]
  - Headache [None]
  - Asthenia [None]
  - Interstitial lung disease [None]
  - Drug reaction with eosinophilia and systemic symptoms [None]
  - Decreased appetite [None]
  - Hypersomnia [None]
  - Pyrexia [None]
  - Weight decreased [None]
  - Fatigue [None]
  - Urine output increased [None]
  - Blood pressure decreased [None]

NARRATIVE: CASE EVENT DATE: 20131121
